FAERS Safety Report 4900324-5 (Version None)
Quarter: 2006Q1

REPORT INFORMATION
  Report Type: 
  Country: None (occurrence: None)
  Receive Date: 20060203
  Receipt Date: 20060201
  Transmission Date: 20060701
  Serious: Yes (Other)
  Sender: FDA-Public Use
  Company Number: US-GLAXOSMITHKLINE-A0591990A

PATIENT
  Age: 5 Year
  Sex: Female
  Weight: 16.1 kg

DRUGS (11)
  1. 506U78 [Suspect]
     Dosage: 400MGM2 CYCLIC
     Route: 042
     Dates: start: 20050614
  2. DOXORUBICIN HCL [Suspect]
     Dosage: 25MGM2 CYCLIC
     Route: 042
     Dates: start: 20050614
  3. METHOTREXATE [Suspect]
     Route: 037
  4. VINCRISTINE [Suspect]
     Dosage: 1.5MGM2 CYCLIC
     Route: 042
     Dates: start: 20050614
  5. ASPARAGINASE [Suspect]
     Dosage: 2500UNIT SINGLE DOSE
     Route: 030
  6. CYCLOPHOSPHAMIDE [Suspect]
     Dosage: 1000MGM2 SINGLE DOSE
     Route: 042
  7. CYTARABINE [Suspect]
     Dosage: 75MGM2 CYCLIC
     Route: 042
  8. THIOGUANINE [Suspect]
     Route: 048
  9. BACTRIM [Concomitant]
  10. VANCOMYCIN [Concomitant]
  11. ZOFRAN [Concomitant]

REACTIONS (9)
  - ASTHENIA [None]
  - BALANCE DISORDER [None]
  - COORDINATION ABNORMAL [None]
  - DIFFICULTY IN WALKING [None]
  - FALL [None]
  - GAIT DISTURBANCE [None]
  - LEUKOENCEPHALOPATHY [None]
  - MOBILITY DECREASED [None]
  - PERIPHERAL MOTOR NEUROPATHY [None]
